FAERS Safety Report 9376209 (Version 1)
Quarter: 2013Q3

REPORT INFORMATION
  Report Type: Spontaneous
  Country: FR (occurrence: FR)
  Receive Date: 20130701
  Receipt Date: 20130701
  Transmission Date: 20140515
  Serious: Yes (Hospitalization)
  Sender: FDA-Public Use
  Company Number: FR-ROCHE-1239437

PATIENT
  Age: 37 Year
  Sex: Female

DRUGS (7)
  1. XELODA [Suspect]
     Indication: PRODUCT USED FOR UNKNOWN INDICATION
     Dosage: 04/FEB/2013 INTERRUPTED
     Route: 048
     Dates: start: 201201, end: 20130306
  2. ROCEPHINE [Suspect]
     Indication: INFLUENZA
     Route: 030
     Dates: start: 20130118, end: 20130126
  3. MESTINON [Suspect]
     Indication: PRODUCT USED FOR UNKNOWN INDICATION
     Route: 048
     Dates: start: 2008
  4. LOVENOX [Suspect]
     Indication: PRODUCT USED FOR UNKNOWN INDICATION
     Route: 058
     Dates: start: 2010
  5. IBUPROFENE [Suspect]
     Indication: INFLUENZA
     Route: 048
     Dates: start: 20130118, end: 20130126
  6. PREDNISONE [Suspect]
     Indication: PRODUCT USED FOR UNKNOWN INDICATION
     Route: 048
     Dates: start: 2008
  7. BUDESONIDE [Concomitant]
     Route: 065

REACTIONS (2)
  - Rash [Not Recovered/Not Resolved]
  - Eosinophilia [Not Recovered/Not Resolved]
